FAERS Safety Report 23033827 (Version 1)
Quarter: 2023Q4

REPORT INFORMATION
  Report Type: Report from Study
  Country: CA (occurrence: CA)
  Receive Date: 20231005
  Receipt Date: 20231005
  Transmission Date: 20240110
  Serious: Yes (Other)
  Sender: FDA-Public Use
  Company Number: CA-002147023-NVSC2023CA057825

PATIENT
  Age: 26 Year
  Sex: Male

DRUGS (1)
  1. HYRIMOZ [Suspect]
     Active Substance: ADALIMUMAB-ADAZ
     Indication: Ankylosing spondylitis
     Dosage: 40 MG
     Route: 058
     Dates: start: 20221110

REACTIONS (7)
  - Back disorder [Unknown]
  - Movement disorder [Unknown]
  - Overweight [Unknown]
  - Shock [Unknown]
  - Pain [Unknown]
  - Back pain [Unknown]
  - Therapeutic product effect decreased [Unknown]
